FAERS Safety Report 5450995-2 (Version None)
Quarter: 2007Q3

REPORT INFORMATION
  Report Type: 
  Country: None (occurrence: None)
  Receive Date: 20070911
  Receipt Date: 20070804
  Transmission Date: 20080115
  Serious: Yes (Death, Other)
  Sender: FDA-Public Use
  Company Number: 160973ISR

PATIENT

DRUGS (2)
  1. PREDNISOLONE [Suspect]
     Dosage: 5 MG (5 MG, 1 IN 1 D) TRANSPLACENTAL
     Route: 064
     Dates: start: 20040404
  2. LEFLUNOMIDE [Suspect]
     Dosage: 20 MG (20 MG, 1 IN 1 D) TRANSPLACENTAL
     Route: 064
     Dates: start: 20060406, end: 20060823

REACTIONS (5)
  - ABORTION INDUCED [None]
  - DRUG EXPOSURE DURING PREGNANCY [None]
  - LIVE BIRTH [None]
  - PREMATURE BABY [None]
  - TWIN PREGNANCY [None]
